FAERS Safety Report 4663487-5 (Version None)
Quarter: 2005Q2

REPORT INFORMATION
  Report Type: 
  Country: None (occurrence: None)
  Receive Date: 20050513
  Receipt Date: 20050504
  Transmission Date: 20051028
  Serious: Yes (Other)
  Sender: FDA-Public Use
  Company Number: 214249

PATIENT
  Sex: 0

DRUGS (1)
  1. NUTROPIN [Suspect]
     Dosage: SUBCUTANEOUS
     Route: 058
     Dates: start: 20041201

REACTIONS (3)
  - HISTOPLASMOSIS [None]
  - LUNG INFILTRATION [None]
  - TUBERCULOSIS [None]
